FAERS Safety Report 12665423 (Version 1)
Quarter: 2016Q3

REPORT INFORMATION
  Report Type: Report from Study
  Country: US (occurrence: US)
  Receive Date: 20160818
  Receipt Date: 20160818
  Transmission Date: 20161109
  Serious: Yes (Death)
  Sender: FDA-Public Use
  Company Number: US-ACTELION-A-US2016-140807

PATIENT
  Age: 87 Year
  Sex: Female

DRUGS (12)
  1. COUMADIN [Concomitant]
     Active Substance: WARFARIN SODIUM
  2. ENALAPRIL [Concomitant]
     Active Substance: ENALAPRIL
  3. GLIPIZIDE. [Concomitant]
     Active Substance: GLIPIZIDE
  4. MOBIC [Concomitant]
     Active Substance: MELOXICAM
  5. SYNVISC [Concomitant]
     Active Substance: HYALURONATE SODIUM
  6. ZYMAR [Concomitant]
     Active Substance: GATIFLOXACIN
  7. XIBROM [Concomitant]
     Active Substance: BROMFENAC SODIUM
  8. TRACLEER [Suspect]
     Active Substance: BOSENTAN
     Indication: PULMONARY ARTERIAL HYPERTENSION
     Dosage: 125 MG, BID
     Route: 048
     Dates: start: 20120731
  9. BUMETANIDE. [Concomitant]
     Active Substance: BUMETANIDE
  10. PREVACID [Concomitant]
     Active Substance: LANSOPRAZOLE
  11. COZAAR [Concomitant]
     Active Substance: LOSARTAN POTASSIUM
  12. POTASSIUM [Concomitant]
     Active Substance: POTASSIUM

REACTIONS (1)
  - Death [Fatal]
